FAERS Safety Report 6795201-1 (Version None)
Quarter: 2010Q2

REPORT INFORMATION
  Report Type: 
  Country: None (occurrence: None)
  Receive Date: 20100625
  Receipt Date: 20100616
  Transmission Date: 20101027
  Serious: Yes (Hospitalization)
  Sender: FDA-Public Use
  Company Number: FR-ASTRAZENECA-2010SE24736

PATIENT
  Age: 1076 Month
  Sex: Female

DRUGS (6)
  1. NEXIUM [Suspect]
     Route: 048
  2. COUMADIN [Interacting]
     Indication: THROMBOSIS PROPHYLAXIS
     Route: 048
  3. ROCEPHIN [Interacting]
     Indication: URINARY TRACT INFECTION
     Route: 058
  4. LEVOTHYROXINE SODIUM [Interacting]
     Indication: HYPERTHYROIDISM
     Route: 048
  5. TAHOR [Interacting]
     Indication: DYSLIPIDAEMIA
     Route: 048
  6. KARDEGIC [Interacting]
     Indication: PAIN
     Route: 048

REACTIONS (2)
  - ANAEMIA [None]
  - DRUG INTERACTION [None]
